FAERS Safety Report 7164639-5 (Version None)
Quarter: 2010Q4

REPORT INFORMATION
  Report Type: 
  Country: None (occurrence: None)
  Receive Date: 20101215
  Receipt Date: 20101209
  Transmission Date: 20110411
  Serious: Yes (Death)
  Sender: FDA-Public Use
  Company Number: US-CELGENEUS-163-21880-10120115

PATIENT
  Sex: Male

DRUGS (3)
  1. REVLIMID [Suspect]
     Indication: MULTIPLE MYELOMA
     Dosage: 15-10 MG
     Route: 048
     Dates: start: 20070401, end: 20070101
  2. REVLIMID [Suspect]
     Route: 048
     Dates: start: 20071201, end: 20100611
  3. REVLIMID [Suspect]
     Route: 048
     Dates: start: 20100923, end: 20100101

REACTIONS (1)
  - MULTIPLE MYELOMA [None]
